FAERS Safety Report 17548577 (Version 2)
Quarter: 2020Q4

REPORT INFORMATION
  Report Type: Spontaneous
  Country: TR (occurrence: TR)
  Receive Date: 20200317
  Receipt Date: 20201225
  Transmission Date: 20210113
  Serious: Yes (Hospitalization, Other)
  Sender: FDA-Public Use
  Company Number: TR-ASTRAZENECA-2020SE37698

PATIENT
  Age: 79 Year
  Sex: Female

DRUGS (20)
  1. AVIL [Concomitant]
     Active Substance: PHENIRAMINE
     Dosage: ONCE A DAY ONE TABLET IN THE EVENINGS-THE PATIENT STARTED IT AFTER BRAIN SURGERY, USING FOR 14-15...
  2. LIPITOR [Concomitant]
     Active Substance: ATORVASTATIN CALCIUM
     Dosage: ONCE A DAY ONE TABLET IN THE EVENINGS-THE PATIENT STARTED IT AFTER BRAIN SURGERY, USING FOR 14-15...
  3. LODUX [Concomitant]
  4. VENTOLIN [Concomitant]
     Active Substance: ALBUTEROL SULFATE
  5. PROBIOTIC [Concomitant]
     Active Substance: PROBIOTICS NOS
  6. RUPAFIN [Concomitant]
     Active Substance: RUPATADINE FUMARATE
     Dosage: TWICE A DAY ONE TABLET -USING FOR A LONG TIME.
  7. DOXIUM [Concomitant]
     Active Substance: CALCIUM DOBESILATE
     Dosage: TWICE A DAY ONE TABLET -USING FOR A LONG TIME.
  8. CORASPIN [Concomitant]
     Active Substance: ASPIRIN
     Dosage: ONCE A DAY ONE TABLET IN THE MORNINGS-USING FOR A LONG TIME
  9. PLAVIX [Concomitant]
     Active Substance: CLOPIDOGREL BISULFATE
  10. FOOD SUPPLEMENT [Concomitant]
  11. PULMICORT TURBUHALER [Concomitant]
     Active Substance: BUDESONIDE
  12. IRESSA [Suspect]
     Active Substance: GEFITINIB
     Indication: LUNG NEOPLASM MALIGNANT
     Dosage: ONCE A DAY ONE TABLET
     Route: 048
     Dates: start: 2019, end: 20200313
  13. BELOC [Concomitant]
     Dosage: ONCE A DAY ONE TABLET IN THE MORNINGS-USING FOR A LONG TIME
  14. LAMICTAT [Concomitant]
     Dosage: ONCE A DAY ONE TABLET IN THE EVENINGS-THE PATIENT STARTED IT AFTER BRAIN SURGERY, USING FOR 14-15...
  15. MAGNESIUM [Concomitant]
     Active Substance: MAGNESIUM
     Dosage: USING FOR A LONG TIME
  16. IRESSA [Suspect]
     Active Substance: GEFITINIB
     Indication: LUNG NEOPLASM MALIGNANT
     Dosage: ONCE A DAY ONE TABLET
     Route: 048
  17. CO DIOVAN [Concomitant]
     Active Substance: HYDROCHLOROTHIAZIDE\VALSARTAN
     Dosage: ONCE A DAY ONE TABLET IN THE MORNINGS-USING FOR A LONG TIME
  18. CITOLES [Concomitant]
     Active Substance: ESCITALOPRAM OXALATE
     Dosage: ONCE A DAY ONE TABLET IN THE MORNINGS-USING FOR A LONG TIME.
  19. TEBOKAN [Concomitant]
     Active Substance: GINKGO
     Dosage: ONCE A DAY ONE TABLET IN THE EVENINGS-THE PATIENT STARTED IT AFTER BRAIN SURGERY, USING FOR 14-15...
  20. ZESTAT [Concomitant]
     Dosage: HALF TABLET

REACTIONS (14)
  - Cardiac failure [Unknown]
  - Bladder disorder [Unknown]
  - Anorectal disorder [Unknown]
  - Panic attack [Unknown]
  - Upper limb fracture [Unknown]
  - Myocardial infarction [Unknown]
  - Diarrhoea [Unknown]
  - Rash [Unknown]
  - Hypokinesia [Unknown]
  - Dry skin [Unknown]
  - Hip fracture [Unknown]
  - Status epilepticus [Unknown]
  - Urinary incontinence [Unknown]
  - Constipation [Unknown]

NARRATIVE: CASE EVENT DATE: 20200311
